FAERS Safety Report 19687619 (Version 1)
Quarter: 2021Q3

REPORT INFORMATION
  Report Type: Spontaneous
  Country: FR (occurrence: FR)
  Receive Date: 20210811
  Receipt Date: 20210811
  Transmission Date: 20211014
  Serious: Yes (Death)
  Sender: FDA-Public Use
  Company Number: FR-PURDUE-USA-2021-0281459

PATIENT
  Age: 49 Year
  Sex: Female

DRUGS (3)
  1. PARACETAMOL [Concomitant]
     Active Substance: ACETAMINOPHEN
     Dosage: UNK [INCONNUE]
     Route: 065
     Dates: end: 202006
  2. MORPHINE SULFATE (SIMILAR TO NDA 19?516) [Suspect]
     Active Substance: MORPHINE SULFATE
     Indication: PRODUCT USED FOR UNKNOWN INDICATION
     Dosage: UNK [INCONNUE]
     Route: 065
     Dates: end: 202006
  3. CODEINE [Suspect]
     Active Substance: CODEINE
     Indication: PRODUCT USED FOR UNKNOWN INDICATION
     Dosage: UNK [INCONNUE]
     Route: 065
     Dates: end: 202006

REACTIONS (3)
  - Respiratory depression [Fatal]
  - Aspiration [Fatal]
  - Poisoning deliberate [Fatal]
